FAERS Safety Report 8007078-7 (Version None)
Quarter: 2011Q4

REPORT INFORMATION
  Report Type: 
  Country: None (occurrence: None)
  Receive Date: 20111222
  Receipt Date: 20111222
  Transmission Date: 20120403
  Serious: No
  Sender: FDA-Public Use
  Company Number: None

PATIENT
  Age: 84 Year
  Sex: Male
  Weight: 79.8 kg

DRUGS (1)
  1. TERAZOSIN HCL [Suspect]
     Dosage: 10 MG AT BEDTIME PO
     Route: 048
     Dates: start: 20110725, end: 20111219

REACTIONS (2)
  - HYPOTENSION [None]
  - SYNCOPE [None]
